FAERS Safety Report 17023597 (Version 2)
Quarter: 2019Q4

REPORT INFORMATION
  Report Type: Report from Study
  Country: US (occurrence: US)
  Receive Date: 20191113
  Receipt Date: 20191210
  Transmission Date: 20200122
  Serious: Yes (Death, Other)
  Sender: FDA-Public Use
  Company Number: NVSC2019US032365

PATIENT
  Age: 0 Year
  Sex: Male
  Weight: 5.4 kg

DRUGS (2)
  1. GSK1120212 [Suspect]
     Active Substance: TRAMETINIB
     Indication: NOONAN SYNDROME
     Dosage: 0.032 BOTTLE
     Route: 048
     Dates: start: 20190924
  2. GSK1120212 [Suspect]
     Active Substance: TRAMETINIB
     Dosage: 0.032 BOTTLE
     Route: 048
     Dates: start: 20191101

REACTIONS (9)
  - Lymphatic obstruction [Fatal]
  - White blood cell count increased [Unknown]
  - Alanine aminotransferase increased [Unknown]
  - Aspartate aminotransferase increased [Unknown]
  - Multiple organ dysfunction syndrome [Fatal]
  - Blood bilirubin increased [Unknown]
  - Malnutrition [Unknown]
  - Generalised oedema [Unknown]
  - Haemoglobin decreased [Unknown]

NARRATIVE: CASE EVENT DATE: 20191004
